FAERS Safety Report 10159867 (Version 1)
Quarter: 2014Q2

REPORT INFORMATION
  Report Type: Spontaneous
  Country: US (occurrence: US)
  Receive Date: 20140508
  Receipt Date: 20140508
  Transmission Date: 20141212
  Serious: No
  Sender: FDA-Public Use
  Company Number: US-GLAXOSMITHKLINE-A1037864A

PATIENT
  Age: 74 Year
  Sex: Female

DRUGS (11)
  1. TYKERB [Suspect]
     Indication: BREAST CANCER
     Dosage: 3TAB PER DAY
     Route: 048
     Dates: start: 20130722
  2. IBUPROFEN [Concomitant]
  3. AMLODIPINE [Concomitant]
  4. ACTONEL [Concomitant]
  5. CRESTOR [Concomitant]
  6. LYRICA [Concomitant]
  7. PANTOPRAZOLE [Concomitant]
  8. SPIRONOLACTONE [Concomitant]
  9. HYDROMORPHONE [Concomitant]
  10. MELATONIN [Concomitant]
  11. MULTIVITAMIN [Concomitant]

REACTIONS (8)
  - Onychalgia [Not Recovered/Not Resolved]
  - Erythema [Not Recovered/Not Resolved]
  - Skin infection [Not Recovered/Not Resolved]
  - Laceration [Not Recovered/Not Resolved]
  - Diarrhoea [Unknown]
  - Nausea [Unknown]
  - Abdominal pain upper [Not Recovered/Not Resolved]
  - Weight decreased [Not Recovered/Not Resolved]
